FAERS Safety Report 8468178-0 (Version None)
Quarter: 2012Q2

REPORT INFORMATION
  Report Type: 
  Country: None (occurrence: None)
  Receive Date: 20120626
  Receipt Date: 20120620
  Transmission Date: 20120825
  Serious: Yes (Hospitalization)
  Sender: FDA-Public Use
  Company Number: US-INCYTE CORPORATION-2012IN000705

PATIENT
  Sex: Female
  Weight: 63.3 kg

DRUGS (12)
  1. BENADRYL ALLERGY SYRUP [Concomitant]
     Dosage: 1 TSP AT BEDTIME
  2. FERROUS SULFATE TAB [Concomitant]
     Dosage: 325 MG, QD
  3. THEOPHYLLINE [Concomitant]
     Dosage: UNK
  4. SECTRAL [Concomitant]
     Dosage: UNK
  5. JAKAFI [Suspect]
     Indication: MYELOFIBROSIS
     Dosage: 15 MG, BID
     Route: 048
     Dates: start: 20120201, end: 20120401
  6. JAKAFI [Suspect]
     Dosage: 15 MG, QD
     Route: 048
     Dates: start: 20120509
  7. VICODIN HP [Concomitant]
     Dosage: 5 MG, PRN
  8. VITAMIN E [Concomitant]
     Dosage: UNK
  9. VITAMIN B COMPLEX CAP [Concomitant]
     Dosage: UNK
  10. CALCIUM [Concomitant]
     Dosage: UNK
  11. DETROL [Concomitant]
     Dosage: 2 MG, BID
  12. LOVAZA [Concomitant]
     Dosage: UNK

REACTIONS (6)
  - CHEST DISCOMFORT [None]
  - FATIGUE [None]
  - FEELING ABNORMAL [None]
  - DYSPNOEA [None]
  - PLATELET COUNT DECREASED [None]
  - BLOOD PRESSURE INCREASED [None]
